FAERS Safety Report 10005972 (Version 6)
Quarter: 2014Q2

REPORT INFORMATION
  Report Type: Report from Study
  Country: DE (occurrence: DE)
  Receive Date: 20140313
  Receipt Date: 20140515
  Transmission Date: 20141212
  Serious: Yes (Hospitalization)
  Sender: FDA-Public Use
  Company Number: PHHO2014DE003546

PATIENT
  Sex: 0

DRUGS (8)
  1. AMN107 [Suspect]
     Indication: CHRONIC MYELOID LEUKAEMIA
     Dosage: 300 MG, BID
     Route: 048
     Dates: start: 20130729
  2. COAPROVEL [Concomitant]
     Indication: HYPERTENSION
     Dosage: 300 MG, UNK
  3. THYRONAJOD [Concomitant]
     Indication: THYROIDECTOMY
     Dosage: 75 MG, UNK
  4. TORASEMIDE [Concomitant]
     Indication: HYPERTENSION
     Dosage: 5 MG, UNK
  5. GLUCOPHAGE [Concomitant]
     Indication: DIABETES MELLITUS
     Dosage: 2000 MG, UNK
  6. MOLSIDOMINE [Concomitant]
     Indication: HYPERTENSION
     Dosage: 8 MG, UNK
  7. INSULIN [Concomitant]
     Indication: DIABETES MELLITUS
     Dosage: SCHEDULED
  8. ANTIHYPERTENSIVES [Concomitant]

REACTIONS (1)
  - Coronary artery disease [Recovered/Resolved with Sequelae]
